FAERS Safety Report 11281964 (Version 2)
Quarter: 2015Q3

REPORT INFORMATION
  Report Type: Spontaneous
  Country: US (occurrence: US)
  Receive Date: 20150718
  Receipt Date: 20150801
  Transmission Date: 20151125
  Serious: Yes (Hospitalization, Other)
  Sender: FDA-Public Use
  Company Number: US-AUROBINDO-AUR-APL-2015-05942

PATIENT
  Age: 23 Year
  Sex: Female

DRUGS (1)
  1. PHENYTOIN. [Suspect]
     Active Substance: PHENYTOIN
     Indication: STATUS EPILEPTICUS
     Route: 065

REACTIONS (6)
  - Ataxia [Unknown]
  - Coma [Recovered/Resolved]
  - Decorticate posture [Recovered/Resolved]
  - Tremor [Unknown]
  - Poor quality sleep [Recovered/Resolved]
  - Toxicity to various agents [Recovered/Resolved]
